FAERS Safety Report 18012273 (Version 5)
Quarter: 2021Q1

REPORT INFORMATION
  Report Type: Report from Study
  Country: None (occurrence: CA)
  Receive Date: 20200713
  Receipt Date: 20210105
  Transmission Date: 20210419
  Serious: Yes (Other)
  Sender: FDA-Public Use
  Company Number: CA-ABBVIE-20K-028-3476634-00

PATIENT
  Sex: Male
  Weight: 55.39 kg

DRUGS (3)
  1. HUMIRA [Suspect]
     Active Substance: ADALIMUMAB
     Indication: CROHN^S DISEASE
     Route: 058
     Dates: start: 20200403, end: 2020
  2. HUMIRA [Suspect]
     Active Substance: ADALIMUMAB
     Route: 058
     Dates: start: 2020
  3. FERROUS GLUCONATE [Concomitant]
     Active Substance: FERROUS GLUCONATE
     Indication: PRODUCT USED FOR UNKNOWN INDICATION
     Route: 048
     Dates: start: 20200425, end: 20200720

REACTIONS (8)
  - Gastrointestinal disorder [Recovering/Resolving]
  - Ileal stenosis [Recovering/Resolving]
  - Ileal ulcer [Not Recovered/Not Resolved]
  - Crohn^s disease [Not Recovered/Not Resolved]
  - Obstruction [Unknown]
  - Scar [Recovering/Resolving]
  - Muscle hypertrophy [Not Recovered/Not Resolved]
  - Intestinal fibrosis [Not Recovered/Not Resolved]

NARRATIVE: CASE EVENT DATE: 2020
